FAERS Safety Report 4634701-7 (Version None)
Quarter: 2005Q2

REPORT INFORMATION
  Report Type: 
  Country: None (occurrence: None)
  Receive Date: 20050413
  Receipt Date: 20050413
  Transmission Date: 20051028
  Serious: Yes (Other)
  Sender: FDA-Public Use
  Company Number: None

PATIENT

DRUGS (1)
  1. NORVASC [Suspect]
     Indication: HYPERTENSION
     Dosage: 5-10 MG PO QD
     Route: 048

REACTIONS (3)
  - DISCOMFORT [None]
  - OEDEMA PERIPHERAL [None]
  - STASIS DERMATITIS [None]
